FAERS Safety Report 14542197 (Version 1)
Quarter: 2018Q1

REPORT INFORMATION
  Report Type: Spontaneous
  Country: DK (occurrence: DK)
  Receive Date: 20180216
  Receipt Date: 20180216
  Transmission Date: 20180509
  Serious: Yes (Hospitalization, Other)
  Sender: FDA-Public Use
  Company Number: DK-OTSUKA-DJ20124599

PATIENT
  Age: 20 Year
  Sex: Male

DRUGS (5)
  1. RITALIN [Suspect]
     Active Substance: METHYLPHENIDATE HYDROCHLORIDE
     Indication: PRODUCT USED FOR UNKNOWN INDICATION
     Dosage: 420 MG, UNK
     Route: 048
     Dates: start: 20120602
  2. MELATONIN [Suspect]
     Active Substance: MELATONIN
     Indication: PRODUCT USED FOR UNKNOWN INDICATION
     Dosage: 15 MG, UNK
     Route: 048
     Dates: start: 20120602
  3. ABILIFY [Suspect]
     Active Substance: ARIPIPRAZOLE
     Indication: PRODUCT USED FOR UNKNOWN INDICATION
     Dosage: 130 MG, UNK
     Route: 048
     Dates: start: 20120602
  4. TRUXAL [Suspect]
     Active Substance: CHLORPROTHIXENE
     Indication: PRODUCT USED FOR UNKNOWN INDICATION
     Dosage: 110 MG, UNK
     Route: 048
     Dates: start: 20120602
  5. SIFROL [Suspect]
     Active Substance: PRAMIPEXOLE
     Indication: PRODUCT USED FOR UNKNOWN INDICATION
     Dosage: 1.232 MG, UNK
     Route: 048
     Dates: start: 20120602

REACTIONS (11)
  - Body temperature decreased [Unknown]
  - Intentional overdose [Unknown]
  - Gait disturbance [Unknown]
  - Pain in extremity [Unknown]
  - Abdominal pain upper [Unknown]
  - Restlessness [Unknown]
  - Discomfort [Unknown]
  - Atrial fibrillation [Unknown]
  - Dystonia [Unknown]
  - Suicide attempt [Unknown]
  - Limb discomfort [Unknown]

NARRATIVE: CASE EVENT DATE: 20120602
